FAERS Safety Report 25338111 (Version 2)
Quarter: 2025Q2

REPORT INFORMATION
  Report Type: Report from Study
  Country: GB (occurrence: GB)
  Receive Date: 20250520
  Receipt Date: 20250528
  Transmission Date: 20250716
  Serious: Yes (Death, Hospitalization, Other)
  Sender: GALPHARM INTERNATIONAL
  Company Number: None

PATIENT
  Age: 84 Year
  Sex: Female

DRUGS (19)
  1. ACETAMINOPHEN [Suspect]
     Active Substance: ACETAMINOPHEN
     Indication: Product used for unknown indication
     Dosage: 1080 MILLIGRAM, QD
     Route: 048
     Dates: start: 20231130, end: 20231130
  2. ENFORTUMAB VEDOTIN [Suspect]
     Active Substance: ENFORTUMAB VEDOTIN
     Indication: Bladder cancer
     Route: 040
     Dates: start: 20231215, end: 20231215
  3. ENFORTUMAB VEDOTIN [Suspect]
     Active Substance: ENFORTUMAB VEDOTIN
     Dates: start: 20231110, end: 20231110
  4. ENFORTUMAB VEDOTIN [Suspect]
     Active Substance: ENFORTUMAB VEDOTIN
     Dates: start: 20231222, end: 20231222
  5. ZOPICLONE [Suspect]
     Active Substance: ZOPICLONE
     Indication: Product used for unknown indication
     Route: 048
     Dates: start: 20231130, end: 20231130
  6. BISOPROLOL [Suspect]
     Active Substance: BISOPROLOL
     Indication: Product used for unknown indication
     Route: 048
     Dates: start: 20231130
  7. ATORVASTATIN [Concomitant]
     Active Substance: ATORVASTATIN
     Indication: Acute myocardial infarction
     Dosage: 20 MILLIGRAM, QD
     Route: 048
     Dates: start: 20231009
  8. OMEPRAZOLE [Concomitant]
     Active Substance: OMEPRAZOLE
     Indication: Gastrooesophageal reflux disease
     Dosage: 20 MILLIGRAM, BID
     Route: 048
     Dates: start: 20230621
  9. WARFARIN [Concomitant]
     Active Substance: WARFARIN
     Indication: Atrial fibrillation
     Route: 048
     Dates: start: 20190813
  10. DIGOXIN [Concomitant]
     Active Substance: DIGOXIN
     Indication: Atrial fibrillation
     Dosage: 125 MILLIGRAM, QD
     Route: 048
     Dates: start: 20230817
  11. DERMOL [BENZALKONIUM CHLORIDE;CHLORHEXIDINE HYDROCHLORIDE;ISOPROPYL MY [Concomitant]
     Indication: Rash maculo-papular
     Route: 065
     Dates: start: 20231128
  12. CARBOXYMETHYLCELLULOSE [Concomitant]
     Active Substance: CARBOXYMETHYLCELLULOSE
     Indication: Dry eye
     Route: 031
     Dates: start: 20231114
  13. CARBOXYMETHYLCELLULOSE [Concomitant]
     Active Substance: CARBOXYMETHYLCELLULOSE
     Indication: Vision blurred
  14. FEXOFENADINE [Concomitant]
     Active Substance: FEXOFENADINE HYDROCHLORIDE
     Indication: Product used for unknown indication
     Dosage: 1 DOSAGE FORM, QD
     Route: 048
     Dates: start: 20231117
  15. CLOBETASONE BUTYRATE [Concomitant]
     Active Substance: CLOBETASONE BUTYRATE
     Indication: Product used for unknown indication
     Dosage: 30 MILLIGRAM, PRN
     Route: 065
     Dates: start: 20231114, end: 20231128
  16. PREDNISOLONE [Concomitant]
     Active Substance: PREDNISOLONE
     Indication: Product used for unknown indication
     Dosage: 60 MILLIGRAM, QD
     Route: 048
     Dates: start: 20231121
  17. LORATADINE [Concomitant]
     Active Substance: LORATADINE
     Indication: Product used for unknown indication
     Dosage: 10 MILLIGRAM, QD
     Route: 048
     Dates: start: 20231114
  18. IMFINZI [Suspect]
     Active Substance: DURVALUMAB
     Indication: Bladder cancer
     Dosage: 1500MG, SINGLE
     Route: 040
     Dates: start: 20231210, end: 20231210
  19. IMFINZI [Suspect]
     Active Substance: DURVALUMAB
     Dates: start: 20231215, end: 20231215

REACTIONS (2)
  - Sepsis [Fatal]
  - Poisoning [Recovered/Resolved]

NARRATIVE: CASE EVENT DATE: 20231201
